FAERS Safety Report 24849355 (Version 2)
Quarter: 2025Q2

REPORT INFORMATION
  Report Type: Spontaneous
  Country: CN (occurrence: CN)
  Receive Date: 20250116
  Receipt Date: 20250408
  Transmission Date: 20250717
  Serious: Yes (Other)
  Sender: PFIZER
  Company Number: CN-PFIZER INC-202500007660

PATIENT
  Age: 59 Year
  Sex: Female

DRUGS (30)
  1. IRINOTECAN HYDROCHLORIDE [Suspect]
     Active Substance: IRINOTECAN HYDROCHLORIDE
     Indication: Colon cancer metastatic
     Dates: start: 20201130, end: 20210715
  2. IRINOTECAN HYDROCHLORIDE [Suspect]
     Active Substance: IRINOTECAN HYDROCHLORIDE
     Indication: Colon cancer stage IV
  3. IRINOTECAN HYDROCHLORIDE [Suspect]
     Active Substance: IRINOTECAN HYDROCHLORIDE
     Indication: Metastases to abdominal cavity
  4. IRINOTECAN HYDROCHLORIDE [Suspect]
     Active Substance: IRINOTECAN HYDROCHLORIDE
     Indication: Metastases to lymph nodes
  5. IRINOTECAN HYDROCHLORIDE [Suspect]
     Active Substance: IRINOTECAN HYDROCHLORIDE
     Indication: Metastases to retroperitoneum
  6. IRINOTECAN HYDROCHLORIDE [Suspect]
     Active Substance: IRINOTECAN HYDROCHLORIDE
     Indication: Metastases to diaphragm
  7. BEVACIZUMAB [Suspect]
     Active Substance: BEVACIZUMAB
     Indication: Colon cancer metastatic
     Dates: start: 20201130, end: 20210715
  8. BEVACIZUMAB [Suspect]
     Active Substance: BEVACIZUMAB
     Indication: Colon cancer stage IV
     Dates: start: 20210803, end: 20220622
  9. BEVACIZUMAB [Suspect]
     Active Substance: BEVACIZUMAB
     Indication: Metastases to abdominal cavity
  10. BEVACIZUMAB [Suspect]
     Active Substance: BEVACIZUMAB
     Indication: Metastases to lymph nodes
  11. BEVACIZUMAB [Suspect]
     Active Substance: BEVACIZUMAB
     Indication: Metastases to retroperitoneum
  12. BEVACIZUMAB [Suspect]
     Active Substance: BEVACIZUMAB
     Indication: Metastases to diaphragm
  13. OXALIPLATIN [Suspect]
     Active Substance: OXALIPLATIN
     Indication: Colon cancer metastatic
     Dates: start: 20201130, end: 20210715
  14. OXALIPLATIN [Suspect]
     Active Substance: OXALIPLATIN
     Indication: Colon cancer stage IV
  15. OXALIPLATIN [Suspect]
     Active Substance: OXALIPLATIN
     Indication: Metastases to abdominal cavity
  16. OXALIPLATIN [Suspect]
     Active Substance: OXALIPLATIN
     Indication: Metastases to lymph nodes
  17. OXALIPLATIN [Suspect]
     Active Substance: OXALIPLATIN
     Indication: Metastases to retroperitoneum
  18. OXALIPLATIN [Suspect]
     Active Substance: OXALIPLATIN
     Indication: Metastases to retroperitoneum
  19. CAPECITABINE [Suspect]
     Active Substance: CAPECITABINE
     Indication: Colon cancer metastatic
     Dates: start: 20201130, end: 20210715
  20. CAPECITABINE [Suspect]
     Active Substance: CAPECITABINE
     Indication: Colon cancer stage IV
     Dates: start: 20210803, end: 20220622
  21. CAPECITABINE [Suspect]
     Active Substance: CAPECITABINE
     Indication: Metastases to abdominal cavity
  22. CAPECITABINE [Suspect]
     Active Substance: CAPECITABINE
     Indication: Metastases to lymph nodes
  23. CAPECITABINE [Suspect]
     Active Substance: CAPECITABINE
     Indication: Metastases to retroperitoneum
  24. CAPECITABINE [Suspect]
     Active Substance: CAPECITABINE
     Indication: Metastases to diaphragm
  25. MANNITOL [Concomitant]
     Active Substance: MANNITOL
     Indication: Colon cancer metastatic
     Dates: start: 20201130, end: 20210715
  26. MANNITOL [Concomitant]
     Active Substance: MANNITOL
     Indication: Colon cancer stage IV
  27. MANNITOL [Concomitant]
     Active Substance: MANNITOL
     Indication: Metastases to abdominal cavity
  28. MANNITOL [Concomitant]
     Active Substance: MANNITOL
     Indication: Metastases to lymph nodes
  29. MANNITOL [Concomitant]
     Active Substance: MANNITOL
     Indication: Metastases to retroperitoneum
  30. MANNITOL [Concomitant]
     Active Substance: MANNITOL
     Indication: Metastases to diaphragm

REACTIONS (2)
  - Agranulocytosis [Recovering/Resolving]
  - Pyrexia [Recovering/Resolving]

NARRATIVE: CASE EVENT DATE: 20210101
